FAERS Safety Report 8404957-3 (Version None)
Quarter: 2012Q2

REPORT INFORMATION
  Report Type: 
  Country: None (occurrence: None)
  Receive Date: 20120601
  Receipt Date: 20120517
  Transmission Date: 20120825
  Serious: Yes (Life-Threatening, Hospitalization)
  Sender: FDA-Public Use
  Company Number: SA-AMGEN-SAUSP2012033869

PATIENT
  Age: 52 Year
  Sex: Male
  Weight: 78 kg

DRUGS (4)
  1. DOCETAXEL [Concomitant]
     Indication: NON-SMALL CELL LUNG CANCER
     Dosage: 75 MG, UNK
     Route: 042
     Dates: start: 20120413, end: 20120428
  2. NEULASTIM [Suspect]
     Indication: FEBRILE NEUTROPENIA
     Dosage: 6 MG, UNK
     Route: 058
     Dates: start: 20120315, end: 20120315
  3. FLUOROURACIL [Concomitant]
     Dosage: 750 MG, QWK
     Route: 042
     Dates: start: 20120413, end: 20120413
  4. CISPLATIN [Concomitant]
     Indication: CHEMOTHERAPY
     Dosage: 75 MG, Q3CYCLES
     Route: 042
     Dates: start: 20120413, end: 20120413

REACTIONS (2)
  - DRUG INEFFECTIVE [None]
  - FEBRILE NEUTROPENIA [None]
